FAERS Safety Report 15826215 (Version 2)
Quarter: 2019Q1

REPORT INFORMATION
  Report Type: Spontaneous
  Country: FR (occurrence: FR)
  Receive Date: 20190115
  Receipt Date: 20190122
  Transmission Date: 20190417
  Serious: Yes (Other)
  Sender: FDA-Public Use
  Company Number: FR-PFIZER INC-2018529401

PATIENT
  Age: 41 Year
  Sex: Female

DRUGS (24)
  1. DOCETAXEL. [Suspect]
     Active Substance: DOCETAXEL
     Dosage: 180 MG, SINGLE
     Route: 042
     Dates: start: 20120125, end: 20120125
  2. EPIRUBICIN HCL [Suspect]
     Active Substance: EPIRUBICIN HYDROCHLORIDE
     Dosage: 180 MG, SINGLE
     Route: 042
     Dates: start: 20111116, end: 20111116
  3. TAXOTERE [Suspect]
     Active Substance: DOCETAXEL
     Dosage: 3 COURSES
  4. CYCLOPHOSPHAMIDE. [Suspect]
     Active Substance: CYCLOPHOSPHAMIDE
     Dosage: 900 MG, SINGLE
     Route: 042
     Dates: start: 20111026, end: 20111026
  5. ZOPHREN [ONDANSETRON HYDROCHLORIDE] [Concomitant]
     Active Substance: ONDANSETRON
     Dosage: 8 MG, SINGLE
     Route: 042
     Dates: start: 20120215, end: 20120215
  6. ZOPHREN [ONDANSETRON HYDROCHLORIDE] [Concomitant]
     Active Substance: ONDANSETRON
     Dosage: 8 MG, SINGLE
     Route: 042
     Dates: start: 20111026, end: 20111026
  7. EPIRUBICIN HCL [Suspect]
     Active Substance: EPIRUBICIN HYDROCHLORIDE
     Dosage: 180 MG, SINGLE
     Route: 042
     Dates: start: 20111026, end: 20111026
  8. FLUOROURACIL. [Suspect]
     Active Substance: FLUOROURACIL
     Dosage: 900 MG, SINGLE
     Route: 042
     Dates: start: 20111026, end: 20111026
  9. TAMOXIFEN CITRATE. [Suspect]
     Active Substance: TAMOXIFEN CITRATE
     Dosage: UNK
     Dates: start: 2011
  10. CYCLOPHOSPHAMIDE. [Suspect]
     Active Substance: CYCLOPHOSPHAMIDE
     Dosage: 900 MG, SINGLE
     Route: 042
     Dates: start: 20111116, end: 20111116
  11. ZOPHREN [ONDANSETRON HYDROCHLORIDE] [Concomitant]
     Active Substance: ONDANSETRON
     Dosage: 8 MG, SINGLE
     Route: 042
     Dates: start: 20111207, end: 20111207
  12. DEXAMETHASONE. [Concomitant]
     Active Substance: DEXAMETHASONE
     Dosage: 8 MG, DAILY
     Route: 048
     Dates: start: 20120215, end: 20120216
  13. EPIRUBICIN HCL [Suspect]
     Active Substance: EPIRUBICIN HYDROCHLORIDE
     Dosage: 180 MG, SINGLE
     Route: 042
     Dates: start: 20111207, end: 20111207
  14. FLUOROURACIL. [Suspect]
     Active Substance: FLUOROURACIL
     Dosage: 900 MG, SINGLE
     Route: 042
     Dates: start: 20111116, end: 20111116
  15. NOLVADEX D [Suspect]
     Active Substance: TAMOXIFEN CITRATE
     Indication: BREAST CANCER FEMALE
     Dosage: UNK
     Dates: start: 20120501
  16. ZOPHREN [ONDANSETRON HYDROCHLORIDE] [Concomitant]
     Active Substance: ONDANSETRON
     Dosage: 8 MG, SINGLE
     Route: 042
     Dates: start: 20120104, end: 20120104
  17. ZOPHREN [ONDANSETRON HYDROCHLORIDE] [Concomitant]
     Active Substance: ONDANSETRON
     Dosage: 8 MG, SINGLE
     Route: 042
     Dates: start: 20120125, end: 20120125
  18. DEXAMETHASONE. [Concomitant]
     Active Substance: DEXAMETHASONE
     Dosage: 8 MG, DAILY
     Route: 048
     Dates: start: 20120125, end: 20120126
  19. DOCETAXEL. [Suspect]
     Active Substance: DOCETAXEL
     Dosage: 180 MG, SINGLE
     Route: 042
     Dates: start: 20120215, end: 20120215
  20. DOCETAXEL. [Suspect]
     Active Substance: DOCETAXEL
     Indication: BREAST CANCER FEMALE
     Dosage: 180 MG, SINGLE
     Route: 042
     Dates: start: 20120104, end: 20120104
  21. CYCLOPHOSPHAMIDE. [Suspect]
     Active Substance: CYCLOPHOSPHAMIDE
     Dosage: 900 MG, SINGLE
     Route: 042
     Dates: start: 20111207, end: 20111207
  22. ZOPHREN [ONDANSETRON HYDROCHLORIDE] [Concomitant]
     Active Substance: ONDANSETRON
     Dosage: 8 MG, SINGLE
     Route: 042
     Dates: start: 20111116, end: 20111116
  23. DEXAMETHASONE. [Concomitant]
     Active Substance: DEXAMETHASONE
     Dosage: 8 MG, DAILY
     Route: 048
     Dates: start: 20120104, end: 20120105
  24. FLUOROURACIL. [Suspect]
     Active Substance: FLUOROURACIL
     Dosage: 900 MG, SINGLE
     Route: 042
     Dates: start: 20111207, end: 20111207

REACTIONS (33)
  - Gait disturbance [Unknown]
  - Facial pain [Unknown]
  - Dizziness [Unknown]
  - Hallucination [Unknown]
  - Visual impairment [Unknown]
  - Tinnitus [Unknown]
  - Arthralgia [Unknown]
  - Emotional disorder [Unknown]
  - Neuralgia [Unknown]
  - Menorrhagia [Unknown]
  - Platelet count decreased [Unknown]
  - Neuropathy peripheral [Unknown]
  - Pain [Unknown]
  - Cognitive disorder [Unknown]
  - Sensory loss [Unknown]
  - Dysstasia [Unknown]
  - Pain in extremity [Unknown]
  - Hot flush [Unknown]
  - Nausea [Unknown]
  - Muscle contracture [Unknown]
  - Insomnia [Unknown]
  - Mucosal toxicity [Unknown]
  - Depressive symptom [Unknown]
  - Skin toxicity [Unknown]
  - Disturbance in attention [Unknown]
  - Herpes zoster [Unknown]
  - Disturbance in attention [Unknown]
  - Vomiting [Unknown]
  - Muscle spasms [Unknown]
  - Tetany [Unknown]
  - Visual acuity reduced [Unknown]
  - Weight increased [Recovering/Resolving]
  - Fatigue [Unknown]

NARRATIVE: CASE EVENT DATE: 20111017
